FAERS Safety Report 8050395 (Version 6)
Quarter: 2013Q1

REPORT INFORMATION
  Report Type: Report from Study
  Country: US (occurrence: US)
  Receive Date: 20110723
  Receipt Date: 20130307
  Transmission Date: 20140127
  Serious: Yes (Hospitalization, Other)
  Sender: FDA-Public Use
  Company Number: US-ABBOTT-11P-163-0839478-00

PATIENT
  Age: 70 None
  Sex: Male
  Weight: 79.45 kg

DRUGS (9)
  1. HUMIRA [Suspect]
     Indication: PSORIASIS
     Route: 058
     Dates: start: 2006
  2. HUMIRA [Suspect]
     Route: 058
     Dates: start: 20110711, end: 20130114
  3. UNKNOWN MEDICATION [Concomitant]
     Indication: SEASONAL ALLERGY
     Route: 058
  4. AMLODIPINE/BENAZEPRIL [Concomitant]
     Indication: HYPERTENSION
     Dosage: 10/40 MG
     Route: 048
  5. PLAVIX [Concomitant]
     Indication: CEREBROVASCULAR ACCIDENT
  6. SYNTHROID [Concomitant]
     Indication: THYROID DISORDER
  7. LOVAZA [Concomitant]
     Indication: PRODUCT USED FOR UNKNOWN INDICATION
  8. ATORVASTATIN [Concomitant]
     Indication: BLOOD CHOLESTEROL
  9. UNKNOWN INJECTIONS [Concomitant]
     Indication: HYPERSENSITIVITY

REACTIONS (29)
  - Cerebrovascular accident [Recovered/Resolved]
  - Meniscus injury [Recovered/Resolved]
  - Carpal tunnel syndrome [Recovered/Resolved]
  - Squamous cell carcinoma [Unknown]
  - Bladder cancer [Unknown]
  - Chronic obstructive pulmonary disease [Not Recovered/Not Resolved]
  - Hypothyroidism [Not Recovered/Not Resolved]
  - Nephropathy [Not Recovered/Not Resolved]
  - Psoriasis [Not Recovered/Not Resolved]
  - Pruritus [Not Recovered/Not Resolved]
  - Pruritus genital [Recovered/Resolved]
  - Pruritus [Not Recovered/Not Resolved]
  - Drug ineffective [Unknown]
  - Memory impairment [Unknown]
  - Mass [Unknown]
  - Acrochordon [Unknown]
  - Haemorrhage [Unknown]
  - Psoriasis [Unknown]
  - Tenderness [Unknown]
  - Blood cholesterol increased [Unknown]
  - Injection site papule [Unknown]
  - Injection site haemorrhage [Unknown]
  - Urticaria [Unknown]
  - Gastrooesophageal reflux disease [Unknown]
  - Aortic aneurysm [Unknown]
  - Squamous cell carcinoma [Unknown]
  - Psoriasis [Unknown]
  - Blood urine [Unknown]
  - Mass [Unknown]
